FAERS Safety Report 18503867 (Version 2)
Quarter: 2021Q1

REPORT INFORMATION
  Report Type: Report from Study
  Country: JP (occurrence: JP)
  Receive Date: 20201113
  Receipt Date: 20210218
  Transmission Date: 20210419
  Serious: No
  Sender: FDA-Public Use
  Company Number: JP-BIOGEN-2020BI00945052

PATIENT
  Age: 26 Year
  Sex: Female
  Weight: 52.2 kg

DRUGS (4)
  1. TECFIDERA [Suspect]
     Active Substance: DIMETHYL FUMARATE
     Indication: RELAPSING-REMITTING MULTIPLE SCLEROSIS
     Route: 048
     Dates: start: 20190810, end: 20190913
  2. TECFIDERA [Suspect]
     Active Substance: DIMETHYL FUMARATE
     Route: 048
     Dates: start: 20191130
  3. TECFIDERA [Suspect]
     Active Substance: DIMETHYL FUMARATE
     Dosage: 120/240 MG
     Route: 048
     Dates: start: 20191026, end: 20191129
  4. TECFIDERA [Suspect]
     Active Substance: DIMETHYL FUMARATE
     Route: 048
     Dates: start: 20190914, end: 20191025

REACTIONS (4)
  - Lymphocyte count decreased [Not Recovered/Not Resolved]
  - Abdominal pain [Recovered/Resolved]
  - Hepatic function abnormal [Recovered/Resolved]
  - Diarrhoea [Recovered/Resolved]

NARRATIVE: CASE EVENT DATE: 20190812
